FAERS Safety Report 7576958-9 (Version None)
Quarter: 2011Q2

REPORT INFORMATION
  Report Type: 
  Country: None (occurrence: None)
  Receive Date: 20110628
  Receipt Date: 20091029
  Transmission Date: 20111010
  Serious: Yes (Hospitalization, Other)
  Sender: FDA-Public Use
  Company Number: US-BAYER-200937389NA

PATIENT
  Age: 33 Year
  Weight: 154 kg

DRUGS (46)
  1. COUMADIN [Concomitant]
     Dosage: 2-10MG DAILY
     Route: 048
     Dates: start: 20001017
  2. ASPIRIN [Concomitant]
     Dosage: 162-325 DAILY
     Route: 048
     Dates: start: 20020514
  3. ASPIRIN [Concomitant]
     Dosage: 162-325MG DAILY
     Route: 054
     Dates: start: 20020514
  4. NITROGLYCERIN [Concomitant]
     Dosage: 0.9
     Route: 042
     Dates: start: 20030806, end: 20031027
  5. PEPCID [Concomitant]
     Dosage: 20 MG, BID
     Route: 048
     Dates: start: 20031023, end: 20031027
  6. FENTANYL [Concomitant]
     Dosage: 0.5 X 2
     Route: 042
     Dates: start: 20031014, end: 20031031
  7. PLASMA [Concomitant]
     Dosage: UNK
     Dates: start: 20031023
  8. ATENOLOL [Concomitant]
     Dosage: UNK
     Route: 048
     Dates: start: 20010207, end: 20031016
  9. DIPHENHYDRAMINE HCL [Concomitant]
     Dosage: 25-50MG
     Route: 048
     Dates: start: 20030528
  10. LOVENOX [Concomitant]
     Dosage: 90-150MG TWICE DAILY [INTERMITTENT USE]
     Route: 058
     Dates: start: 20030811, end: 20060502
  11. DOPAMINE HCL [Concomitant]
     Dosage: 2-8MCG/KG/MINUTE
     Route: 042
     Dates: start: 20031016, end: 20031102
  12. VASOPRESSIN [Concomitant]
     Dosage: 0.01-0.1MG/MINUTE
     Route: 042
     Dates: start: 20031020, end: 20031022
  13. ATROPINE [Concomitant]
     Dosage: X 1
     Route: 042
     Dates: start: 20031021
  14. DOBUTAMINE HCL [Concomitant]
     Dosage: 1.2-2MICROGRAMS/KILOGRAMS/MINUTE
     Route: 042
     Dates: start: 20031022, end: 20031027
  15. VANCOMYCIN [Concomitant]
     Dosage: 0.9
     Route: 042
     Dates: start: 20030806, end: 20031027
  16. PLATELETS [Concomitant]
     Dosage: UNK
     Dates: start: 20031023
  17. CRYOPRECIPITATES [Concomitant]
     Dosage: UNK
     Dates: start: 20031023
  18. TRASYLOL [Suspect]
  19. NITROGLYCERIN [Concomitant]
     Dosage: 0.4MG PRN
     Route: 060
     Dates: start: 20020514, end: 20031023
  20. CAPTOPRIL [Concomitant]
     Dosage: 25 MG, TID
     Route: 048
     Dates: start: 20030807, end: 20030902
  21. REGULAR INSULIN [Concomitant]
     Dosage: 3.4-11 UNITS/HOUR; SLIDING SCARE Q4H
     Route: 042
     Dates: start: 20031016, end: 20031105
  22. LASIX [Concomitant]
     Dosage: 60-80/HR OR Q8H
     Route: 042
     Dates: start: 20031020
  23. TRASYLOL [Suspect]
     Indication: THORACIC OPERATION
     Dosage: LODING DOSE - 100 ML BOLUS, THEN 25 ML/HR
     Route: 042
     Dates: start: 20031023
  24. INTEGRILIN [Concomitant]
     Dosage: 11.3ML 20ML/HR
     Route: 042
     Dates: start: 20030806, end: 20030807
  25. HEPARIN [Concomitant]
     Dosage: 61,000 UNITS
     Route: 042
     Dates: start: 20030804, end: 20060629
  26. PLAVIX [Concomitant]
     Dosage: 75 MG, QD
     Route: 048
     Dates: start: 20030805
  27. TOPROL-XL [Concomitant]
     Dosage: 5-100MG DAILY TO TWICE DAILY
     Route: 048
     Dates: start: 20030806, end: 20061017
  28. ALTACE [Concomitant]
     Indication: HYPERTENSION
     Dosage: 2.5-5MG DAILY
     Route: 048
     Dates: start: 20030813
  29. DOPAMINE HCL [Concomitant]
     Dosage: 3MCG/KG/MINUTE
     Route: 042
     Dates: start: 20031016, end: 20031102
  30. VITAMIN K TAB [Concomitant]
     Dosage: 10MG
     Route: 058
     Dates: start: 20031022
  31. PEPCID [Concomitant]
     Dosage: 20 MG, BID
     Route: 042
     Dates: start: 20031023, end: 20031027
  32. RED BLOOD CELLS [Concomitant]
     Dosage: UNK
     Dates: start: 20031023
  33. DEMEROL [Concomitant]
     Dosage: 12.5-125MG EVERY
  34. HESPAN IN EXCEL PLASTIC CONTAINER [Concomitant]
     Dosage: 250-500CC
     Route: 042
     Dates: start: 20031016, end: 20031022
  35. NIPRIDE [Concomitant]
     Dosage: 0.2MCG/KILOGRAMS/MINUTE
     Route: 042
     Dates: start: 20031016, end: 20031027
  36. PROTAMINE SULFATE [Concomitant]
     Dosage: 60MG
     Route: 042
     Dates: start: 20031016
  37. LASIX [Concomitant]
  38. MANNITOL [Concomitant]
     Dosage: 12.5 GRAMS
     Route: 042
     Dates: start: 20031023, end: 20031023
  39. NITROGLYCERIN [Concomitant]
     Dosage: 0.5-2 MICROGRAM/KILOGRAM/MINUTE
     Route: 042
     Dates: start: 20020514, end: 20031027
  40. TOPROL-XL [Concomitant]
     Dosage: 5-100 DAILY TO TWICE DAILY
     Route: 042
     Dates: start: 20030806, end: 20061017
  41. IMDUR [Concomitant]
     Dosage: 30 MG, QD
     Route: 048
     Dates: start: 20030807
  42. PROTONIX [Concomitant]
     Dosage: 40 MG, QD
     Route: 048
     Dates: start: 20030808, end: 20070517
  43. HEPARIN [Concomitant]
     Dosage: 1000-21000/HOUR INTERMITTENT USE
     Route: 042
     Dates: start: 20001017, end: 20060629
  44. ACETAMINOPHEN AND HYDROCODONE BITARTRATE [Concomitant]
     Indication: PAIN
     Dosage: 5-7.5/325-500MG, 1-2 TABLES EVERY 2-8 HOURS AS NEEDED
     Route: 048
     Dates: start: 20010204
  45. NITROGLYCERIN [Concomitant]
     Dosage: 1 INCH Q6H
     Dates: start: 20020514, end: 20031027
  46. TOPROL-XL [Concomitant]

REACTIONS (6)
  - CARDIOGENIC SHOCK [None]
  - PAIN [None]
  - PSYCHIATRIC SYMPTOM [None]
  - RENAL FAILURE [None]
  - INJURY [None]
  - UNEVALUABLE EVENT [None]
